FAERS Safety Report 7782918-5 (Version None)
Quarter: 2011Q3

REPORT INFORMATION
  Report Type: 
  Country: None (occurrence: None)
  Receive Date: 20110927
  Receipt Date: 20110927
  Transmission Date: 20111222
  Serious: Yes (Hospitalization)
  Sender: FDA-Public Use
  Company Number: None

PATIENT
  Sex: Male
  Weight: 25.7 kg

DRUGS (5)
  1. METHOTREXATE [Suspect]
     Dosage: 64.5 MG
  2. MIRALAX [Concomitant]
  3. MERCAPTOPURINE [Suspect]
     Dosage: 1700 MG
  4. DEXAMETHASONE [Suspect]
     Dosage: 55 MG
  5. VINCRISTINE SULFATE [Suspect]
     Dosage: 2.8 MG

REACTIONS (9)
  - COLITIS [None]
  - CLOSTRIDIUM COLITIS [None]
  - INFLAMMATORY BOWEL DISEASE [None]
  - RETROPERITONEAL ABSCESS [None]
  - NEUTROPENIA [None]
  - BACTERAEMIA [None]
  - LARGE INTESTINE PERFORATION [None]
  - PYREXIA [None]
  - SEPTIC SHOCK [None]
